FAERS Safety Report 25212652 (Version 3)
Quarter: 2025Q2

REPORT INFORMATION
  Report Type: Spontaneous
  Country: FR (occurrence: FR)
  Receive Date: 20250418
  Receipt Date: 20250625
  Transmission Date: 20250717
  Serious: Yes (Other)
  Sender: ARGENX BVBA
  Company Number: FR-ARGENX-2025-ARGX-FR004896

PATIENT

DRUGS (3)
  1. VYVGART [Suspect]
     Active Substance: EFGARTIGIMOD ALFA-FCAB
     Indication: Myasthenia gravis
     Route: 058
     Dates: start: 20250206
  2. CORTICOSTEROID NOS [Concomitant]
     Active Substance: CORTICOSTEROID NOS
     Indication: Product used for unknown indication
     Route: 065
  3. Imurel [Concomitant]
     Indication: Product used for unknown indication
     Route: 065

REACTIONS (2)
  - Dermatomyositis [Not Recovered/Not Resolved]
  - Tinea versicolour [Recovered/Resolved]

NARRATIVE: CASE EVENT DATE: 20250410
